FAERS Safety Report 8176535-5 (Version None)
Quarter: 2012Q1

REPORT INFORMATION
  Report Type: 
  Country: None (occurrence: None)
  Receive Date: 20120301
  Receipt Date: 20120221
  Transmission Date: 20120608
  Serious: Yes (Life-Threatening, Other)
  Sender: FDA-Public Use
  Company Number: DZ-NOVOPROD-344299

PATIENT
  Sex: Male
  Weight: 4.55 kg

DRUGS (2)
  1. INSULATARD PENFILL [Suspect]
     Indication: PRODUCT USED FOR UNKNOWN INDICATION
     Dosage: UNK
     Route: 015
  2. NOVORAPID FLEXPEN [Suspect]
     Indication: PRODUCT USED FOR UNKNOWN INDICATION
     Dosage: UNK
     Route: 015

REACTIONS (3)
  - HUMERUS FRACTURE [None]
  - NEONATAL RESPIRATORY DISTRESS SYNDROME [None]
  - FOETAL EXPOSURE DURING PREGNANCY [None]
